FAERS Safety Report 7420011-1 (Version None)
Quarter: 2011Q2

REPORT INFORMATION
  Report Type: 
  Country: None (occurrence: None)
  Receive Date: 20110418
  Receipt Date: 20110406
  Transmission Date: 20111010
  Serious: No
  Sender: FDA-Public Use
  Company Number: US-BIOGENIDEC-2011BI007125

PATIENT
  Sex: Female

DRUGS (3)
  1. TYSABRI [Suspect]
     Indication: MULTIPLE SCLEROSIS
     Route: 042
     Dates: start: 20090717, end: 20101201
  2. STEROIDS (NOS) [Concomitant]
  3. DEPAKOTE [Concomitant]

REACTIONS (10)
  - STRESS [None]
  - PARAESTHESIA [None]
  - DEPRESSION [None]
  - NAUSEA [None]
  - DIZZINESS [None]
  - ANXIETY [None]
  - FEELING OF BODY TEMPERATURE CHANGE [None]
  - NERVOUSNESS [None]
  - FEELING ABNORMAL [None]
  - EYE PAIN [None]
